FAERS Safety Report 18531026 (Version 1)
Quarter: 2020Q4

REPORT INFORMATION
  Report Type: Spontaneous
  Country: CN (occurrence: CN)
  Receive Date: 20201122
  Receipt Date: 20201122
  Transmission Date: 20210114
  Serious: Yes (Hospitalization)
  Sender: FDA-Public Use
  Company Number: CN-JNJFOC-20201126529

PATIENT
  Age: 66 Year
  Sex: Male
  Weight: 60 kg

DRUGS (4)
  1. WARFARIN SODIUM. [Interacting]
     Active Substance: WARFARIN SODIUM
     Indication: THROMBOSIS
     Dosage: 4.5 MG, QD
     Route: 048
     Dates: start: 20201023, end: 20201025
  2. WARFARIN SODIUM. [Interacting]
     Active Substance: WARFARIN SODIUM
     Indication: PULMONARY EMBOLISM
  3. RIVAROXABAN [Interacting]
     Active Substance: RIVAROXABAN
     Indication: PULMONARY EMBOLISM
  4. RIVAROXABAN [Suspect]
     Active Substance: RIVAROXABAN
     Indication: THROMBOSIS
     Dosage: 15 MG, BID
     Route: 048
     Dates: start: 20201025, end: 20201027

REACTIONS (4)
  - Coagulopathy [Recovering/Resolving]
  - Contraindicated product administered [Unknown]
  - Labelled drug-drug interaction medication error [Unknown]
  - Off label use [Unknown]

NARRATIVE: CASE EVENT DATE: 20201025
